FAERS Safety Report 23785523 (Version 3)
Quarter: 2024Q2

REPORT INFORMATION
  Report Type: Spontaneous
  Country: US (occurrence: US)
  Receive Date: 20240425
  Receipt Date: 20240502
  Transmission Date: 20240716
  Serious: Yes (Death, Other)
  Sender: FDA-Public Use
  Company Number: US-GILEAD-2024-0670392

PATIENT
  Age: 65 Year
  Sex: Female
  Weight: 55.9 kg

DRUGS (5)
  1. YESCARTA [Suspect]
     Active Substance: AXICABTAGENE CILOLEUCEL
     Indication: Diffuse large B-cell lymphoma
     Dosage: UNK
     Route: 065
     Dates: start: 20240118, end: 20240118
  2. EPCORITAMAB [Concomitant]
     Active Substance: EPCORITAMAB
  3. ANAKINRA [Concomitant]
     Active Substance: ANAKINRA
  4. FLUDARABINE [Concomitant]
     Active Substance: FLUDARABINE PHOSPHATE
  5. CYCLOPHOSPHAMIDE [Concomitant]
     Active Substance: CYCLOPHOSPHAMIDE

REACTIONS (15)
  - Cytokine release syndrome [Fatal]
  - Aspergillus infection [Unknown]
  - Encephalitis cytomegalovirus [Unknown]
  - Human herpesvirus 6 encephalitis [Unknown]
  - Cytomegalovirus viraemia [Unknown]
  - Human herpesvirus 6 infection [Unknown]
  - Urinary retention [Unknown]
  - Pancytopenia [Unknown]
  - Soft tissue infection [Unknown]
  - Pneumonia [Unknown]
  - Immune effector cell-associated neurotoxicity syndrome [Unknown]
  - Candida infection [Unknown]
  - Viral infection [Unknown]
  - Dysuria [Unknown]
  - Cancer pain [Unknown]

NARRATIVE: CASE EVENT DATE: 20240120
